FAERS Safety Report 7119217-0 (Version None)
Quarter: 2010Q4

REPORT INFORMATION
  Report Type: 
  Country: None (occurrence: None)
  Receive Date: 20101123
  Receipt Date: 20101119
  Transmission Date: 20110411
  Serious: Yes (Hospitalization)
  Sender: FDA-Public Use
  Company Number: ID-BAYER-200919775GPV

PATIENT
  Age: 71 Year
  Sex: Male
  Weight: 57 kg

DRUGS (10)
  1. MOXIFLOXACIN [Suspect]
     Indication: BRONCHITIS
     Route: 048
     Dates: start: 20090416, end: 20090422
  2. CODEINE SUL TAB [Concomitant]
     Indication: BRONCHITIS
     Route: 048
     Dates: start: 20090415, end: 20090506
  3. SALBRON [Concomitant]
     Indication: BRONCHITIS
     Route: 048
     Dates: start: 20090415, end: 20090506
  4. AMINOPHYLLIN [Concomitant]
     Indication: BRONCHITIS
     Route: 048
     Dates: start: 20090415, end: 20090506
  5. POTIO NIGRA [Concomitant]
     Indication: BRONCHITIS
     Route: 048
     Dates: start: 20090415, end: 20090506
  6. AMLODIPINE [Concomitant]
     Indication: HYPERTENSION
     Route: 048
     Dates: start: 20090415, end: 20090503
  7. ALDACTONE [Concomitant]
     Indication: HYPERTENSION
     Route: 048
     Dates: start: 20090415, end: 20090502
  8. PRONEURON [Concomitant]
     Indication: ARTHRALGIA
     Route: 048
     Dates: start: 20090415, end: 20090530
  9. PHARMATON VIT [Concomitant]
     Indication: PRODUCT USED FOR UNKNOWN INDICATION
     Route: 048
     Dates: start: 20090415, end: 20090530
  10. BECOM-C [Concomitant]
     Indication: PRODUCT USED FOR UNKNOWN INDICATION
     Route: 048
     Dates: start: 20090428, end: 20090506

REACTIONS (3)
  - BRONCHITIS [None]
  - DRUG INEFFECTIVE [None]
  - GASTRITIS [None]
